FAERS Safety Report 14544374 (Version 1)
Quarter: 2018Q1

REPORT INFORMATION
  Report Type: Spontaneous
  Country: US (occurrence: US)
  Receive Date: 20180216
  Receipt Date: 20180216
  Transmission Date: 20180509
  Serious: Yes (Hospitalization, Other)
  Sender: FDA-Public Use
  Company Number: US-ROCHE-2075592

PATIENT
  Age: 90 Year
  Sex: Female

DRUGS (1)
  1. ACTIVASE [Suspect]
     Active Substance: ALTEPLASE
     Indication: APHASIA
     Route: 065

REACTIONS (5)
  - Intentional product use issue [Unknown]
  - Blood pressure increased [Recovering/Resolving]
  - Aphasia [Unknown]
  - Failure to thrive [Unknown]
  - Off label use [Unknown]
